FAERS Safety Report 20190444 (Version 1)
Quarter: 2021Q4

REPORT INFORMATION
  Report Type: Spontaneous
  Country: CN (occurrence: None)
  Receive Date: 20211215
  Receipt Date: 20211215
  Transmission Date: 20220303
  Serious: Yes (Hospitalization)
  Sender: FDA-Public Use
  Company Number: CN-Eisai Medical Research-EC-2021-104877

PATIENT
  Age: 46 Year
  Sex: Male
  Weight: 66.5 kg

DRUGS (10)
  1. RABEPRAZOLE [Suspect]
     Active Substance: RABEPRAZOLE
     Indication: Duodenal ulcer
     Route: 048
     Dates: start: 20211115, end: 20211129
  2. RABEPRAZOLE [Suspect]
     Active Substance: RABEPRAZOLE
     Indication: Helicobacter infection
  3. FURAZOLIDONE [Suspect]
     Active Substance: FURAZOLIDONE
     Indication: Duodenal ulcer
     Route: 048
     Dates: start: 20211115, end: 20211129
  4. FURAZOLIDONE [Suspect]
     Active Substance: FURAZOLIDONE
     Indication: Helicobacter infection
  5. LEVOFLOXACIN [Suspect]
     Active Substance: LEVOFLOXACIN
     Indication: Duodenal ulcer
     Route: 048
     Dates: start: 20211115, end: 20211129
  6. LEVOFLOXACIN [Suspect]
     Active Substance: LEVOFLOXACIN
     Indication: Helicobacter infection
  7. BISMUTH SUBCITRATE [Concomitant]
     Active Substance: BISMUTH SUBCITRATE
     Indication: Duodenal ulcer
     Route: 048
     Dates: start: 20211115, end: 20211129
  8. BISMUTH SUBCITRATE [Concomitant]
     Active Substance: BISMUTH SUBCITRATE
     Indication: Helicobacter infection
  9. REBAMIPIDE [Concomitant]
     Active Substance: REBAMIPIDE
     Indication: Duodenal ulcer
     Route: 048
     Dates: start: 20211115, end: 20211129
  10. REBAMIPIDE [Concomitant]
     Active Substance: REBAMIPIDE
     Indication: Helicobacter infection

REACTIONS (4)
  - Eating disorder [Recovering/Resolving]
  - Urticaria [Recovering/Resolving]
  - Rash erythematous [Recovering/Resolving]
  - Pruritus [Recovering/Resolving]

NARRATIVE: CASE EVENT DATE: 20211129
